FAERS Safety Report 5653237-8 (Version None)
Quarter: 2008Q1

REPORT INFORMATION
  Report Type: 
  Country: None (occurrence: None)
  Receive Date: 20080306
  Receipt Date: 20080220
  Transmission Date: 20080703
  Serious: Yes (Death, Hospitalization)
  Sender: FDA-Public Use
  Company Number: US-BAYER-200418322BWH

PATIENT
  Age: 61 Year
  Sex: Male
  Weight: 84 kg

DRUGS (9)
  1. RAF KINASE [Suspect]
     Indication: LUNG ADENOCARCINOMA
     Dosage: TOTAL DAILY DOSE: 800 MG  UNIT DOSE: 400 MG
     Route: 048
     Dates: start: 20040429, end: 20040603
  2. IRESSA [Suspect]
     Dosage: TOTAL DAILY DOSE: 250 MG  UNIT DOSE: 250 MG
     Route: 048
     Dates: start: 20040429, end: 20040603
  3. ACIPHEX [Concomitant]
     Indication: GASTROOESOPHAGEAL REFLUX DISEASE
     Route: 048
     Dates: start: 20011023, end: 20040428
  4. TYLENOL W/ CODEINE [Concomitant]
     Indication: PAIN
     Route: 048
     Dates: start: 20040414
  5. COUMADIN [Concomitant]
     Indication: CENTRAL VENOUS CATHETERISATION
     Route: 048
     Dates: start: 20000429
  6. HEPARIN [Concomitant]
  7. LEVAQUIN [Concomitant]
  8. OXYGEN [Concomitant]
  9. ROCEPHIN [Concomitant]
     Route: 042

REACTIONS (5)
  - COUGH [None]
  - DYSPNOEA [None]
  - ERYTHEMA [None]
  - NON-SMALL CELL LUNG CANCER [None]
  - PAIN IN EXTREMITY [None]
